FAERS Safety Report 6045609-7 (Version None)
Quarter: 2009Q1

REPORT INFORMATION
  Report Type: 
  Country: None (occurrence: None)
  Receive Date: 20090121
  Receipt Date: 20090114
  Transmission Date: 20090719
  Serious: Yes (Hospitalization)
  Sender: FDA-Public Use
  Company Number: NO-ROCHE-540781

PATIENT
  Sex: Female

DRUGS (5)
  1. NAPROSYN [Suspect]
     Indication: RHEUMATOID ARTHRITIS
     Dosage: DRUG REPORTED AS NAPROSYN ENTERO. FORM: ^ENTERIC TABLET^.
     Route: 048
     Dates: start: 19800101, end: 20000101
  2. NAPROSYN [Suspect]
     Route: 048
     Dates: start: 20041001, end: 20060101
  3. NAPROSYN [Suspect]
     Route: 048
     Dates: start: 20060101
  4. VIOXX [Suspect]
     Indication: RHEUMATOID ARTHRITIS
     Route: 048
     Dates: start: 20000101, end: 20040901
  5. CORTICOSTEROID NOS [Concomitant]
     Indication: RHEUMATOID ARTHRITIS
     Dosage: DRUG: CORTICOSTEROID INJECTIONS OCASIONALLY.
     Route: 065

REACTIONS (2)
  - ILEAL ULCER [None]
  - SUBILEUS [None]
